FAERS Safety Report 7560041-2 (Version None)
Quarter: 2011Q2

REPORT INFORMATION
  Report Type: 
  Country: None (occurrence: None)
  Receive Date: 20110621
  Receipt Date: 20110618
  Transmission Date: 20111010
  Serious: Yes (Death, Life-Threatening, Hospitalization, Other)
  Sender: FDA-Public Use
  Company Number: PHHO2011SA10502

PATIENT
  Sex: Female
  Weight: 68.7 kg

DRUGS (8)
  1. EVEROLIMUS [Suspect]
     Indication: METASTATIC RENAL CELL CARCINOMA
     Dosage: 10 MG, QD
     Route: 048
     Dates: start: 20110508, end: 20110531
  2. BISOPROLOL FUMARATE [Concomitant]
     Indication: HYPERTENSION
     Dosage: 10 MG, QD
     Route: 048
     Dates: start: 20060101, end: 20110529
  3. DEXAMETHASONE [Suspect]
     Dosage: 4 MG= 1 ML INJECTION BID
     Dates: start: 20110605, end: 20110613
  4. INDAPAMIDE [Concomitant]
     Indication: HYPERTENSION
     Dosage: 1.5 MG, QD
     Route: 048
     Dates: start: 20060101, end: 20110529
  5. HYDROCORTISONE [Suspect]
     Dosage: 50 MG- 1ML 96 HOURS
     Route: 042
     Dates: start: 20100607, end: 20100610
  6. ASPIRIN [Concomitant]
     Indication: PROPHYLAXIS
     Dosage: 85 MG, QD
     Route: 048
     Dates: start: 20010101
  7. LIPITOR [Concomitant]
     Indication: DYSLIPIDAEMIA
     Dosage: 1.5 MG, QD
     Route: 048
     Dates: start: 20010101
  8. PANTOPRAZOLE [Concomitant]
     Indication: DYSLIPIDAEMIA
     Dosage: 40 MG, QD
     Route: 048
     Dates: start: 20101101

REACTIONS (8)
  - HYPERNATRAEMIA [None]
  - HYPOKALAEMIA [None]
  - HYPOTENSION [None]
  - DEPRESSED LEVEL OF CONSCIOUSNESS [None]
  - HYPOPHOSPHATAEMIA [None]
  - SUBCUTANEOUS ABSCESS [None]
  - HYPOMAGNESAEMIA [None]
  - HYPOGLYCAEMIA [None]
